FAERS Safety Report 6006802-2 (Version None)
Quarter: 2008Q4

REPORT INFORMATION
  Report Type: 
  Country: None (occurrence: None)
  Receive Date: 20081217
  Receipt Date: 20080822
  Transmission Date: 20090506
  Serious: No
  Sender: FDA-Public Use
  Company Number: US-ASTRAZENECA-2005UW06427

PATIENT
  Age: 51 Year
  Sex: Female
  Weight: 72.6 kg

DRUGS (6)
  1. CRESTOR [Suspect]
     Indication: HYPERCHOLESTEROLAEMIA
     Route: 048
  2. CRESTOR [Suspect]
     Route: 048
  3. AMERGE [Concomitant]
  4. DIOVAN HCT [Concomitant]
     Dosage: 160-25 MG
  5. INNOPRAN XL [Concomitant]
  6. ZETIA [Concomitant]

REACTIONS (5)
  - ASTHENIA [None]
  - MUSCULAR WEAKNESS [None]
  - MYALGIA [None]
  - VISION BLURRED [None]
  - WEIGHT INCREASED [None]
